FAERS Safety Report 25895823 (Version 1)
Quarter: 2025Q4

REPORT INFORMATION
  Report Type: Spontaneous
  Country: US (occurrence: US)
  Receive Date: 20251008
  Receipt Date: 20251008
  Transmission Date: 20260117
  Serious: No
  Sender: BAYER HEALTHCARE PHARMACEUTICALS INC.
  Company Number: US-BAYER-2025A130009

PATIENT
  Sex: Male

DRUGS (2)
  1. JIVI [Suspect]
     Active Substance: DAMOCTOCOG ALFA PEGOL
     Indication: Prophylaxis
     Dosage: JIVI 3209 IU: INFUSE~3000 UNITS (+/- 10%)
     Route: 042
  2. JIVI [Suspect]
     Active Substance: DAMOCTOCOG ALFA PEGOL
     Indication: Haemorrhage
     Dosage: 2 DF, JIVI 3209 IU: INFUSE~3000 UNITS (+/- 10%)
     Route: 042

REACTIONS (2)
  - Arthropathy [None]
  - Product dose omission issue [None]
